FAERS Safety Report 10077658 (Version 2)
Quarter: 2014Q2

REPORT INFORMATION
  Report Type: Spontaneous
  Country: US (occurrence: US)
  Receive Date: 20140414
  Receipt Date: 20140414
  Transmission Date: 20141212
  Serious: No
  Sender: FDA-Public Use
  Company Number: US-BANPHARM-20142163

PATIENT
  Age: 77 Year
  Sex: Female
  Weight: 63.5 kg

DRUGS (11)
  1. ALEVE LIQUID GELS 220 MG [Suspect]
     Dosage: 2 DF,
     Route: 048
  2. FISH OIL [Concomitant]
  3. ATENOLOL [Concomitant]
  4. SYNTHROID [Concomitant]
  5. ARICEPT [Concomitant]
  6. NEXIUM [Concomitant]
  7. LOTENSIN [Concomitant]
  8. SYMBICORT [Concomitant]
  9. GENERIC CALCIUM WITH D3 [Concomitant]
  10. SIMVASTATIN [Concomitant]
  11. VENLAFAXINE [Concomitant]

REACTIONS (5)
  - Insomnia [Recovered/Resolved]
  - Head titubation [Recovered/Resolved]
  - Tremor [Recovered/Resolved]
  - Dysphonia [Recovered/Resolved]
  - Off label use [Recovered/Resolved]
